FAERS Safety Report 4839134-6 (Version None)
Quarter: 2005Q4

REPORT INFORMATION
  Report Type: 
  Country: None (occurrence: None)
  Receive Date: 20051031
  Receipt Date: 20050919
  Transmission Date: 20060501
  Serious: No
  Sender: FDA-Public Use
  Company Number: 200516619US

PATIENT
  Age: 22 Year
  Sex: Female
  Weight: 56.8 kg

DRUGS (2)
  1. KETEK [Suspect]
     Indication: LYMPHADENOPATHY
     Dosage: 400 (2 TABS) MG QD PO
     Route: 048
     Dates: start: 20050915
  2. ORAL CONTRACEPTIVE NOS [Concomitant]

REACTIONS (1)
  - VISION BLURRED [None]
